FAERS Safety Report 9863076 (Version 1)
Quarter: 2014Q1

REPORT INFORMATION
  Report Type: Spontaneous
  Country: US (occurrence: US)
  Receive Date: 20140203
  Receipt Date: 20140203
  Transmission Date: 20141002
  Serious: No
  Sender: FDA-Public Use
  Company Number: PHEH2014US002128

PATIENT
  Sex: Female

DRUGS (8)
  1. TASIGNA [Suspect]
     Dosage: 300 MG, BID
  2. TOPAMAX [Concomitant]
     Dosage: 50 MG
  3. IMITREX//SUMATRIPTAN SUCCINATE [Concomitant]
     Indication: MIGRAINE
     Dosage: 50 MG
  4. ATORVASTATIN CALCIUM [Concomitant]
     Dosage: 10 MG
  5. ZYRTEC [Concomitant]
     Indication: HYPERSENSITIVITY
     Dosage: UNK UKN, UNK
  6. ALLEGRA [Concomitant]
     Indication: HYPERSENSITIVITY
     Dosage: UNK UKN, UNK
  7. VITAMIN D//ERGOCALCIFEROL [Concomitant]
     Dosage: 2000 U
  8. MULTI-VIT [Concomitant]
     Dosage: UNK UKN, UNK

REACTIONS (2)
  - Gastrointestinal pain [Unknown]
  - Anxiety [Unknown]
